FAERS Safety Report 7197824-7 (Version None)
Quarter: 2010Q4

REPORT INFORMATION
  Report Type: 
  Country: None (occurrence: None)
  Receive Date: 20101227
  Receipt Date: 20101217
  Transmission Date: 20110411
  Serious: Yes (Other)
  Sender: FDA-Public Use
  Company Number: BR-ROCHE-394825

PATIENT
  Age: 34 Year
  Sex: Female

DRUGS (2)
  1. PEGINTERFERON ALFA-2A [Suspect]
     Dosage: THE PATIENT RECEIVED TREATMENT FOR SIX MONTHS.
     Route: 065
     Dates: start: 20010301
  2. RIBAVIRIN [Suspect]
     Dosage: THE PATIENT RECEIVED TREATMENT FOR SIX MONTHS.
     Route: 065
     Dates: start: 20010301

REACTIONS (1)
  - COELIAC DISEASE [None]
